FAERS Safety Report 4732880-4 (Version None)
Quarter: 2005Q3

REPORT INFORMATION
  Report Type: 
  Country: None (occurrence: None)
  Receive Date: 20050803
  Receipt Date: 20050422
  Transmission Date: 20060218
  Serious: No
  Sender: FDA-Public Use
  Company Number: US-GLAXOSMITHKLINE-A0555387A

PATIENT
  Age: 50 Year
  Sex: Male

DRUGS (8)
  1. AVANDAMET [Suspect]
     Route: 048
     Dates: start: 20040101
  2. NOVOLOG [Concomitant]
  3. VASOTEC RPD [Concomitant]
  4. MAXZIDE [Concomitant]
  5. SLOW-K [Concomitant]
  6. XANAX [Concomitant]
  7. VITAMIN B-12 [Concomitant]
  8. THIAMINE HCL [Concomitant]

REACTIONS (1)
  - FATIGUE [None]
